FAERS Safety Report 7935800-4 (Version None)
Quarter: 2011Q4

REPORT INFORMATION
  Report Type: 
  Country: None (occurrence: None)
  Receive Date: 20111123
  Receipt Date: 20111109
  Transmission Date: 20120403
  Serious: Yes (Hospitalization)
  Sender: FDA-Public Use
  Company Number: PHHO2010DE01142

PATIENT
  Sex: Male
  Weight: 93 kg

DRUGS (1)
  1. ILARIS [Suspect]
     Indication: CRYOPYRIN ASSOCIATED PERIODIC SYNDROME
     Dosage: 150 MG, FOR EVERY 8 WEEKS
     Route: 058
     Dates: start: 20091110

REACTIONS (4)
  - DYSPNOEA [None]
  - PYREXIA [None]
  - PNEUMONIA [None]
  - PRODUCTIVE COUGH [None]
